FAERS Safety Report 8360696-9 (Version None)
Quarter: 2012Q2

REPORT INFORMATION
  Report Type: 
  Country: None (occurrence: None)
  Receive Date: 20120515
  Receipt Date: 20120509
  Transmission Date: 20120825
  Serious: Yes (Hospitalization, Other)
  Sender: FDA-Public Use
  Company Number: IL-ACTELION-A-CH2012-65646

PATIENT
  Age: 30 Year
  Sex: Female

DRUGS (1)
  1. TRACLEER [Suspect]
     Indication: DIGITAL ULCER
     Dosage: UNK , UNK
     Route: 048
     Dates: start: 20120101

REACTIONS (3)
  - SCLERODERMA [None]
  - CONDITION AGGRAVATED [None]
  - DIGITAL ULCER [None]
